FAERS Safety Report 23363478 (Version 1)
Quarter: 2024Q1

REPORT INFORMATION
  Report Type: Spontaneous
  Country: US (occurrence: US)
  Receive Date: 20240103
  Receipt Date: 20240103
  Transmission Date: 20240410
  Serious: Yes (Other)
  Sender: FDA-Public Use
  Company Number: US-NORTHSTAR RX LLC-US-2023NSR000498

PATIENT

DRUGS (1)
  1. PROPRANOLOL HYDROCHLORIDE [Suspect]
     Active Substance: PROPRANOLOL HYDROCHLORIDE
     Indication: Autism spectrum disorder
     Dosage: UNK
     Route: 065

REACTIONS (1)
  - Suicidal ideation [Recovering/Resolving]
